FAERS Safety Report 15491129 (Version 1)
Quarter: 2018Q4

REPORT INFORMATION
  Report Type: Spontaneous
  Country: US (occurrence: US)
  Receive Date: 20181012
  Receipt Date: 20181012
  Transmission Date: 20190205
  Serious: No
  Sender: FDA-Public Use
  Company Number: US-PHARMING-PHAUS2018000656

PATIENT

DRUGS (1)
  1. RUCONEST [Suspect]
     Active Substance: HUMAN C1-ESTERASE INHIBITOR
     Indication: HEREDITARY ANGIOEDEMA
     Dosage: 280000 IU, PREVENTATIVE IF TIRED, STRESSED OR WORKING A LOT. 1 DOSE, NO MORE THAN 2 IN 24 HRS
     Route: 065
     Dates: start: 201801

REACTIONS (1)
  - Drug ineffective for unapproved indication [Unknown]
